FAERS Safety Report 8050632-7 (Version None)
Quarter: 2012Q1

REPORT INFORMATION
  Report Type: 
  Country: None (occurrence: None)
  Receive Date: 20120117
  Receipt Date: 20120117
  Transmission Date: 20120608
  Serious: Yes (Hospitalization, Other)
  Sender: FDA-Public Use
  Company Number: None

PATIENT
  Age: 70 Year
  Sex: Male
  Weight: 68.538 kg

DRUGS (1)
  1. DIMETHYL SULFOXIDE [Suspect]
     Indication: PROSTATE CANCER
     Dosage: UNKNOWN -NOT ON BAG-
     Route: 041

REACTIONS (1)
  - HAEMATURIA [None]
